FAERS Safety Report 23703472 (Version 1)
Quarter: 2024Q2

REPORT INFORMATION
  Report Type: Spontaneous
  Country: US (occurrence: US)
  Receive Date: 20240403
  Receipt Date: 20240403
  Transmission Date: 20240716
  Serious: No
  Sender: FDA-Public Use
  Company Number: US-ABBVIE-5701246

PATIENT

DRUGS (1)
  1. RINVOQ [Suspect]
     Active Substance: UPADACITINIB
     Indication: Product used for unknown indication
     Route: 048

REACTIONS (5)
  - Weight increased [Unknown]
  - Skin disorder [Unknown]
  - Alopecia [Unknown]
  - Crohn^s disease [Recovering/Resolving]
  - Pruritus [Recovering/Resolving]
